FAERS Safety Report 4375351-X (Version None)
Quarter: 2004Q2

REPORT INFORMATION
  Report Type: 
  Country: None (occurrence: None)
  Receive Date: 20040610
  Receipt Date: 20040531
  Transmission Date: 20050107
  Serious: Yes (Hospitalization)
  Sender: FDA-Public Use
  Company Number: JP-BRISTOL-MYERS SQUIBB COMPANY-12601571

PATIENT
  Age: 42 Year
  Sex: Female

DRUGS (1)
  1. MAXIPIME [Suspect]
     Indication: INFECTION
     Route: 042
     Dates: start: 20040315

REACTIONS (1)
  - STEVENS-JOHNSON SYNDROME [None]
